FAERS Safety Report 13660478 (Version 1)
Quarter: 2017Q2

REPORT INFORMATION
  Report Type: Spontaneous
  Country: US (occurrence: US)
  Receive Date: 20170615
  Receipt Date: 20170615
  Transmission Date: 20170830
  Serious: No
  Sender: FDA-Public Use
  Company Number: None

PATIENT
  Age: 60 Year
  Sex: Male
  Weight: 90 kg

DRUGS (4)
  1. MULTIVITAMIN [Concomitant]
     Active Substance: VITAMINS
  2. FISH OIL [Concomitant]
     Active Substance: FISH OIL
  3. MAGNESIUM [Concomitant]
     Active Substance: MAGNESIUM
  4. GABAPENTIN 400MG [Suspect]
     Active Substance: GABAPENTIN
     Indication: NEUROPATHY PERIPHERAL
     Route: 048
     Dates: start: 20110606, end: 20170610

REACTIONS (3)
  - Swelling face [None]
  - Peripheral swelling [None]
  - Inappropriate antidiuretic hormone secretion [None]

NARRATIVE: CASE EVENT DATE: 20170317
